FAERS Safety Report 25380543 (Version 13)
Quarter: 2025Q4

REPORT INFORMATION
  Report Type: Report from Study
  Country: CA (occurrence: CA)
  Receive Date: 20250530
  Receipt Date: 20251103
  Transmission Date: 20260118
  Serious: Yes (Hospitalization, Other)
  Sender: BIOVITRUM
  Company Number: CA-BIOVITRUM-2025-CA-007168

PATIENT
  Age: 21 Year
  Sex: Female

DRUGS (19)
  1. DOPTELET [Suspect]
     Active Substance: AVATROMBOPAG MALEATE
     Indication: Immune thrombocytopenia
     Dosage: DAILY
     Route: 048
     Dates: start: 20250514
  2. DOPTELET [Suspect]
     Active Substance: AVATROMBOPAG MALEATE
     Dosage: EVERY OTHER DAY
     Route: 048
     Dates: start: 20250523, end: 20250530
  3. DOPTELET [Suspect]
     Active Substance: AVATROMBOPAG MALEATE
     Dosage: EVERY OTHER DAY
     Route: 048
     Dates: start: 20250616
  4. DOPTELET [Suspect]
     Active Substance: AVATROMBOPAG MALEATE
     Dosage: TWICE A WEEK
     Route: 048
     Dates: start: 20250707
  5. DOPTELET [Suspect]
     Active Substance: AVATROMBOPAG MALEATE
     Dosage: 5 TIMES A WEEK
     Route: 048
     Dates: start: 20250723
  6. DOPTELET [Suspect]
     Active Substance: AVATROMBOPAG MALEATE
     Dosage: 7 DAYS A WEEK/DAILY
     Route: 048
     Dates: start: 20250806, end: 20250819
  7. DOPTELET [Suspect]
     Active Substance: AVATROMBOPAG MALEATE
     Dosage: EVERYDAY
     Route: 048
     Dates: start: 20250806, end: 20250820
  8. DOPTELET [Suspect]
     Active Substance: AVATROMBOPAG MALEATE
     Dosage: DAILY(TWO 20MG=40MG DOPTELET TABLETS)/EVERYDAY
     Route: 048
     Dates: start: 20250830
  9. DOPTELET [Suspect]
     Active Substance: AVATROMBOPAG MALEATE
     Dosage: DAILY
     Route: 048
     Dates: start: 20250923
  10. DOPTELET [Suspect]
     Active Substance: AVATROMBOPAG MALEATE
     Dosage: EVERYDAY
     Route: 048
     Dates: start: 20250906
  11. DOPTELET [Suspect]
     Active Substance: AVATROMBOPAG MALEATE
     Dosage: 2 DOSES PER 3 DAYS
     Route: 048
     Dates: start: 20250912
  12. DOPTELET [Suspect]
     Active Substance: AVATROMBOPAG MALEATE
     Dosage: EVERYDAY
     Route: 048
     Dates: start: 20250918
  13. DOPTELET [Suspect]
     Active Substance: AVATROMBOPAG MALEATE
     Dosage: 5 DAYS A WEEK
     Route: 048
     Dates: start: 20250729
  14. DOPTELET [Suspect]
     Active Substance: AVATROMBOPAG MALEATE
     Route: 048
     Dates: start: 20250926, end: 20250929
  15. DOPTELET [Suspect]
     Active Substance: AVATROMBOPAG MALEATE
     Route: 048
     Dates: start: 20251002
  16. DOPTELET [Suspect]
     Active Substance: AVATROMBOPAG MALEATE
     Dosage: EVERYDAY
     Route: 048
     Dates: start: 20251006
  17. DOPTELET [Suspect]
     Active Substance: AVATROMBOPAG MALEATE
     Dosage: EVERYDAY
     Route: 048
     Dates: start: 20251018
  18. DOPTELET [Suspect]
     Active Substance: AVATROMBOPAG MALEATE
     Dosage: EVERY OTHER DAY
     Route: 048
     Dates: start: 20251023
  19. PREDNISONE [Concomitant]
     Active Substance: PREDNISONE
     Indication: Product used for unknown indication
     Dosage: TAPERED DOWN PREDNISONE FROM 50MG TO 0MG (EXAMPLE: TAKING 40MG FOR 5 DAYS, THEN?30MG FOR 5 DAYS AND

REACTIONS (7)
  - Platelet count increased [Not Recovered/Not Resolved]
  - Platelet count decreased [Recovered/Resolved]
  - Contusion [Unknown]
  - Fatigue [Unknown]
  - Off label use [Recovered/Resolved]
  - Poikilocytosis [Unknown]
  - Immature platelet fraction increased [Unknown]

NARRATIVE: CASE EVENT DATE: 20250520
